FAERS Safety Report 16577645 (Version 7)
Quarter: 2020Q1

REPORT INFORMATION
  Report Type: Report from Study
  Country: DE (occurrence: DE)
  Receive Date: 20190716
  Receipt Date: 20200303
  Transmission Date: 20200409
  Serious: Yes (Hospitalization, Other)
  Sender: FDA-Public Use
  Company Number: PHHO2019DE006972

PATIENT
  Age: 61 Year
  Sex: Male
  Weight: 85.8 kg

DRUGS (35)
  1. MORPHIN [Concomitant]
     Active Substance: MORPHINE
     Indication: ARTHRALGIA
     Dosage: UNK
     Route: 065
     Dates: start: 20190701, end: 20190701
  2. STEROFUNDIN [Concomitant]
     Active Substance: CALCIUM CHLORIDE\MAGNESIUM CHLORIDE\POTASSIUM CHLORIDE\SODIUM ACETATE\SODIUM CHLORIDE
     Indication: DIARRHOEA
     Dosage: UNK
     Route: 065
     Dates: start: 20190701, end: 20190704
  3. DOCETAXEL COMP-DOC+CONSOLINF [Suspect]
     Active Substance: DOCETAXEL
     Indication: NON-SMALL CELL LUNG CANCER
     Dosage: 75 MG/M2, Q3W
     Route: 042
     Dates: start: 20190624, end: 20190624
  4. NOVAMINSULFON [Concomitant]
     Active Substance: METAMIZOLE
     Indication: MUCOSAL INFLAMMATION
     Dosage: UNK
     Route: 065
     Dates: start: 20190701, end: 20190701
  5. FENTANYL. [Concomitant]
     Active Substance: FENTANYL
     Indication: ARTHRALGIA
     Dosage: UNK
     Route: 065
  6. KALINOR [Concomitant]
     Indication: HYPOKALAEMIA
     Route: 065
     Dates: start: 20190705, end: 20190706
  7. ASPIRIN. [Concomitant]
     Active Substance: ASPIRIN
     Indication: CORONARY ARTERY DISEASE
     Dosage: UNK
     Route: 065
     Dates: start: 20070101, end: 20190702
  8. NOVAMINSULFON [Concomitant]
     Active Substance: METAMIZOLE
     Indication: ARTHRALGIA
     Dosage: UNK
     Route: 065
     Dates: start: 20190701, end: 20190709
  9. RAMIPRIL. [Concomitant]
     Active Substance: RAMIPRIL
     Indication: HYPERTENSION
  10. METOPROLOL. [Concomitant]
     Active Substance: METOPROLOL
     Indication: HYPERTENSION
  11. BEZAFIBRAT [Concomitant]
     Active Substance: BEZAFIBRATE
     Indication: CORONARY ARTERY DISEASE
     Dosage: UNK
     Route: 065
     Dates: start: 20181222
  12. DEXAMETHASONE. [Concomitant]
     Active Substance: DEXAMETHASONE
     Indication: PROPHYLAXIS
     Dosage: UNK
     Route: 065
     Dates: start: 20190617, end: 20190617
  13. IBUPROFEN. [Concomitant]
     Active Substance: IBUPROFEN
     Indication: HEADACHE
  14. EPLERENONE. [Concomitant]
     Active Substance: EPLERENONE
     Indication: CORONARY ARTERY DISEASE
     Dosage: UNK
     Route: 065
     Dates: start: 20070101, end: 20190701
  15. BUSCOPAN [Concomitant]
     Active Substance: BUTYLSCOPOLAMINE BROMIDE
     Dosage: UNK
     Route: 065
     Dates: start: 20190705, end: 20190708
  16. FLUCONAZOL [Concomitant]
     Active Substance: FLUCONAZOLE
     Dosage: UNK
     Route: 065
     Dates: start: 20190705, end: 20190708
  17. DOCETAXEL COMP-DOC+CONSOLINF [Suspect]
     Active Substance: DOCETAXEL
     Dosage: 56.25 MG/M2
     Route: 042
     Dates: start: 20190722
  18. ASPIRIN. [Concomitant]
     Active Substance: ASPIRIN
     Dosage: UNK
     Route: 065
     Dates: start: 20190704
  19. IBUPROFEN. [Concomitant]
     Active Substance: IBUPROFEN
     Indication: PAIN
     Dosage: UNK
     Route: 065
     Dates: start: 20190530, end: 20190623
  20. FENTANYL. [Concomitant]
     Active Substance: FENTANYL
     Indication: MUCOSAL INFLAMMATION
  21. FLUCONAZOL [Concomitant]
     Active Substance: FLUCONAZOLE
     Indication: ORAL CANDIDIASIS
     Dosage: UNK
     Route: 065
     Dates: start: 20190701, end: 20190705
  22. CANAKINUMAB. [Suspect]
     Active Substance: CANAKINUMAB
     Indication: NON-SMALL CELL LUNG CANCER
     Dosage: CODE NOT BROKEN
     Route: 058
     Dates: start: 20190624
  23. DEXAMETHASONE. [Concomitant]
     Active Substance: DEXAMETHASONE
     Indication: THERAPEUTIC PROCEDURE
     Dosage: UNK
     Route: 065
     Dates: start: 20190623, end: 20190626
  24. DEXAMETHASONE. [Concomitant]
     Active Substance: DEXAMETHASONE
     Indication: NON-SMALL CELL LUNG CANCER
     Dosage: UNK
     Route: 065
     Dates: start: 20190624, end: 20190624
  25. ONDANSETRON [Concomitant]
     Active Substance: ONDANSETRON
     Indication: PROPHYLAXIS
     Dosage: UNK
     Route: 065
     Dates: start: 20190624, end: 20190624
  26. ONDANSETRON [Concomitant]
     Active Substance: ONDANSETRON
     Indication: PROPHYLAXIS OF NAUSEA AND VOMITING
     Dosage: UNK
     Route: 065
     Dates: start: 20190625, end: 20190626
  27. AMPHO MORONAL [Concomitant]
     Active Substance: AMPHOTERICIN B
     Indication: ORAL CANDIDIASIS
     Dosage: UNK
     Route: 065
     Dates: start: 20190701, end: 20190714
  28. RAMIPRIL. [Concomitant]
     Active Substance: RAMIPRIL
     Indication: CORONARY ARTERY DISEASE
     Dosage: UNK
     Route: 065
     Dates: start: 20070101, end: 20190701
  29. RANOLAZINE. [Concomitant]
     Active Substance: RANOLAZINE
     Indication: CORONARY ARTERY DISEASE
     Dosage: UNK
     Route: 065
     Dates: start: 20181222, end: 20190702
  30. METFORMIN [Concomitant]
     Active Substance: METFORMIN HYDROCHLORIDE
     Indication: TYPE 2 DIABETES MELLITUS
     Dosage: UNK
     Route: 065
     Dates: start: 20190128
  31. NOVAMINSULFON [Concomitant]
     Active Substance: METAMIZOLE
     Indication: PAIN
     Dosage: UNK
     Route: 065
     Dates: start: 20190625, end: 20190701
  32. CLEXANE [Concomitant]
     Active Substance: ENOXAPARIN SODIUM
     Indication: PROPHYLAXIS
     Dosage: UNK
     Route: 065
     Dates: start: 20190701, end: 20190709
  33. BUSCOPAN [Concomitant]
     Active Substance: BUTYLSCOPOLAMINE BROMIDE
     Indication: DIARRHOEA
     Dosage: UNK
     Route: 065
     Dates: start: 20190702, end: 20190704
  34. METOPROLOL. [Concomitant]
     Active Substance: METOPROLOL
     Indication: CORONARY ARTERY DISEASE
     Dosage: UNK
     Route: 065
     Dates: start: 20070101, end: 20190701
  35. KALIUM RETARD [Concomitant]
     Indication: HYPOKALAEMIA
     Route: 065
     Dates: start: 20190705, end: 20190705

REACTIONS (3)
  - Sepsis [Recovered/Resolved]
  - Mucosal inflammation [Recovered/Resolved]
  - Neutropenia [Recovered/Resolved]

NARRATIVE: CASE EVENT DATE: 20190628
